FAERS Safety Report 8985944 (Version 1)
Quarter: 2012Q4

REPORT INFORMATION
  Report Type: 
  Country: US (occurrence: US)
  Receive Date: 20121226
  Receipt Date: 20121226
  Transmission Date: 20130627
  Serious: Yes (Other)
  Sender: FDA-Public Use
  Company Number: US-JNJFOC-20121211426

PATIENT

DRUGS (14)
  1. DOXORUBICIN [Suspect]
     Indication: FOETAL EXPOSURE DURING PREGNANCY
     Dosage: dose-dense chemotherapy
     Route: 064
  2. DOXORUBICIN [Suspect]
     Indication: FOETAL EXPOSURE DURING PREGNANCY
     Dosage: conventional chemotherapy
     Route: 064
  3. CYCLOPHOSPHAMIDE [Suspect]
     Indication: FOETAL EXPOSURE DURING PREGNANCY
     Dosage: dose-dense chemotherapy
     Route: 064
  4. CYCLOPHOSPHAMIDE [Suspect]
     Indication: FOETAL EXPOSURE DURING PREGNANCY
     Dosage: conventional chemotherapy
     Route: 064
  5. 5-FLUOROURACIL [Suspect]
     Indication: FOETAL EXPOSURE DURING PREGNANCY
     Dosage: dose-dense chemotherapy
     Route: 064
  6. 5-FLUOROURACIL [Suspect]
     Indication: FOETAL EXPOSURE DURING PREGNANCY
     Dosage: conventional chemotherapy
     Route: 064
  7. PACLITAXEL [Suspect]
     Indication: FOETAL EXPOSURE DURING PREGNANCY
     Dosage: conventional chemotherapy
     Route: 064
  8. PACLITAXEL [Suspect]
     Indication: FOETAL EXPOSURE DURING PREGNANCY
     Dosage: dose-dense chemotherapy
     Route: 064
  9. DOCETAXEL [Suspect]
     Indication: FOETAL EXPOSURE DURING PREGNANCY
     Dosage: 75-100 mg/m2, dose-dense chemotherapy
     Route: 064
  10. DOCETAXEL [Suspect]
     Indication: FOETAL EXPOSURE DURING PREGNANCY
     Dosage: 75-100 mg/m2, conventional chemotherapy
     Route: 064
  11. DACTINOMYCIN [Suspect]
     Indication: FOETAL EXPOSURE DURING PREGNANCY
     Dosage: conventional chemotherapy
     Route: 064
  12. DACTINOMYCIN [Suspect]
     Indication: FOETAL EXPOSURE DURING PREGNANCY
     Dosage: dose-dense chemotherapy
     Route: 064
  13. PEGFILGRASTIM [Suspect]
     Indication: FOETAL EXPOSURE DURING PREGNANCY
     Route: 064
  14. FILGRASTIM [Suspect]
     Indication: FOETAL EXPOSURE DURING PREGNANCY
     Route: 064

REACTIONS (2)
  - Premature baby [Not Recovered/Not Resolved]
  - Foetal growth restriction [Unknown]
